FAERS Safety Report 25287840 (Version 5)
Quarter: 2025Q3

REPORT INFORMATION
  Report Type: Spontaneous
  Country: EU (occurrence: EU)
  Receive Date: 20250509
  Receipt Date: 20250807
  Transmission Date: 20251020
  Serious: Yes (Hospitalization, Disabling, Other)
  Sender: PFIZER
  Company Number: EU-DEXPHARM-2025-2738

PATIENT
  Age: 86 Year
  Sex: Female

DRUGS (22)
  1. PANTOPRAZOLE [Suspect]
     Active Substance: PANTOPRAZOLE
     Dosage: 40 MG, 1X/DAY
     Route: 065
  2. PANTOPRAZOLE [Suspect]
     Active Substance: PANTOPRAZOLE
     Dosage: 20 MG, 1X/DAY
     Route: 065
  3. METFORMIN HYDROCHLORIDE [Suspect]
     Active Substance: METFORMIN HYDROCHLORIDE
     Dosage: 850 MG, 2X/DAY
     Route: 065
  4. METFORMIN HYDROCHLORIDE [Suspect]
     Active Substance: METFORMIN HYDROCHLORIDE
     Dosage: 500 MG, 2X/DAY
     Route: 065
  5. HYDROCHLOROTHIAZIDE\RAMIPRIL [Suspect]
     Active Substance: HYDROCHLOROTHIAZIDE\RAMIPRIL
     Indication: Blood pressure abnormal
     Dosage: HCT: 50 MILLIGRAM, QD
     Route: 065
  6. METOPROLOL [Suspect]
     Active Substance: METOPROLOL
     Indication: Blood pressure abnormal
     Dosage: 20 MG, Q/DAY
     Route: 065
  7. TORSEMIDE [Suspect]
     Active Substance: TORSEMIDE
     Indication: Blood pressure abnormal
     Route: 065
  8. PROMETHAZINE [Suspect]
     Active Substance: PROMETHAZINE HYDROCHLORIDE
     Route: 065
  9. NALOXONE HYDROCHLORIDE\TILIDINE HYDROCHLORIDE [Suspect]
     Active Substance: NALOXONE HYDROCHLORIDE\TILIDINE HYDROCHLORIDE
     Route: 065
  10. CINNARIZINE\DIMENHYDRINATE [Suspect]
     Active Substance: CINNARIZINE\DIMENHYDRINATE
     Indication: Dizziness
     Route: 065
  11. CITALOPRAM [Suspect]
     Active Substance: CITALOPRAM
     Dosage: 40 MILLIGRAM, QD
     Route: 065
  12. CITALOPRAM [Suspect]
     Active Substance: CITALOPRAM
     Dosage: 20 MILLIGRAM, QD
     Route: 065
  13. SIMVASTATIN [Suspect]
     Active Substance: SIMVASTATIN
     Route: 065
  14. SITAGLIPTIN [Suspect]
     Active Substance: SITAGLIPTIN
     Dosage: 50 MG, 2X/DAY
     Route: 065
  15. SITAGLIPTIN [Suspect]
     Active Substance: SITAGLIPTIN
     Dosage: 50 MG, 1X/DAY
     Route: 065
  16. SITAGLIPTIN [Suspect]
     Active Substance: SITAGLIPTIN
     Dosage: 850 MG, 2X/DAY
     Route: 065
  17. SITAGLIPTIN [Suspect]
     Active Substance: SITAGLIPTIN
     Dosage: 500 MG, 2X/DAY
  18. NALOXONE HYDROCHLORIDE [Suspect]
     Active Substance: NALOXONE HYDROCHLORIDE
     Route: 065
  19. SCHWEDENTABLETTEN [Concomitant]
  20. ALLOPURINOL [Concomitant]
     Active Substance: ALLOPURINOL
  21. PROPIVERINE [Concomitant]
     Active Substance: PROPIVERINE
  22. BISOPROLOL [Concomitant]
     Active Substance: BISOPROLOL

REACTIONS (12)
  - Fall [Recovered/Resolved]
  - Contusion [Recovered/Resolved]
  - Craniofacial fracture [Recovered/Resolved]
  - Mobility decreased [Recovered/Resolved]
  - Renal impairment [Unknown]
  - Medication error [Recovered/Resolved]
  - Hyponatraemia [Recovered/Resolved]
  - Lethargy [Recovered/Resolved]
  - Dizziness [Recovered/Resolved]
  - Fatigue [Recovered/Resolved]
  - Dysphagia [Recovered/Resolved]
  - Constipation [Recovered/Resolved]
